FAERS Safety Report 4283510-X (Version None)
Quarter: 2004Q1

REPORT INFORMATION
  Report Type: 
  Country: None (occurrence: None)
  Receive Date: 20040121
  Receipt Date: 20030513
  Transmission Date: 20041129
  Serious: Yes (Hospitalization)
  Sender: FDA-Public Use
  Company Number: A03200301016

PATIENT
  Age: 70 Year
  Sex: Female
  Weight: 63.5036 kg

DRUGS (2)
  1. PLAVIX [Suspect]
     Indication: ARRHYTHMIA
     Dosage: 75 MG QD - ORAL
     Route: 048
     Dates: start: 20030401, end: 20030419
  2. PLAVIX [Suspect]
     Indication: MITRAL VALVE PROLAPSE
     Dosage: 75 MG QD - ORAL
     Route: 048
     Dates: start: 20030401, end: 20030419

REACTIONS (1)
  - RECTAL HAEMORRHAGE [None]
